FAERS Safety Report 9691544 (Version 2)
Quarter: 2013Q4

REPORT INFORMATION
  Report Type: Spontaneous
  Country: CA (occurrence: CA)
  Receive Date: 20131115
  Receipt Date: 20131115
  Transmission Date: 20140711
  Serious: Yes (Hospitalization)
  Sender: FDA-Public Use
  Company Number: CA-ABBVIE-13P-028-1080771-00

PATIENT
  Age: 67 Year
  Sex: Female
  Weight: 97.61 kg

DRUGS (5)
  1. HUMIRA [Suspect]
     Indication: PSORIATIC ARTHROPATHY
     Dates: start: 200612, end: 20121020
  2. ARAVA [Suspect]
     Indication: PSORIATIC ARTHROPATHY
     Dates: start: 200212, end: 20121020
  3. ASPIRIN [Concomitant]
     Indication: PRODUCT USED FOR UNKNOWN INDICATION
     Route: 048
  4. CIPRALEX [Concomitant]
     Indication: PRODUCT USED FOR UNKNOWN INDICATION
     Route: 048
  5. LOSEC [Concomitant]
     Indication: PRODUCT USED FOR UNKNOWN INDICATION
     Route: 048

REACTIONS (7)
  - Chills [Unknown]
  - Jugular vein thrombosis [Unknown]
  - Lymphadenopathy [Unknown]
  - Pyrexia [Unknown]
  - Abscess neck [Unknown]
  - Headache [Unknown]
  - Streptococcal infection [Unknown]
